FAERS Safety Report 16286604 (Version 1)
Quarter: 2019Q2

REPORT INFORMATION
  Report Type: Spontaneous
  Country: US (occurrence: US)
  Receive Date: 20190507
  Receipt Date: 20190507
  Transmission Date: 20190711
  Serious: Yes (Other)
  Sender: FDA-Public Use
  Company Number: None

PATIENT
  Age: 54 Year
  Sex: Female
  Weight: 74.39 kg

DRUGS (5)
  1. LISINOPRIL. [Suspect]
     Active Substance: LISINOPRIL
     Indication: HYPERTENSION
     Route: 048
     Dates: start: 20071009, end: 20181206
  2. ASPIRIN 81MG [Concomitant]
     Active Substance: ASPIRIN
     Dates: start: 20110307
  3. ATENOLOL 25MG [Concomitant]
     Active Substance: ATENOLOL
     Dates: start: 20130531
  4. PRAVASTATIN. [Concomitant]
     Active Substance: PRAVASTATIN
     Dates: start: 20140402
  5. HCTZ 25 MG [Concomitant]
     Dates: start: 20130621

REACTIONS (1)
  - Cough [None]

NARRATIVE: CASE EVENT DATE: 20181206
